FAERS Safety Report 25032999 (Version 3)
Quarter: 2025Q2

REPORT INFORMATION
  Report Type: Report from Study
  Country: US (occurrence: US)
  Receive Date: 20250303
  Receipt Date: 20250515
  Transmission Date: 20250717
  Serious: Yes (Other)
  Sender: UCB
  Company Number: US-UCBSA-2025008379

PATIENT
  Age: 19 Year
  Sex: Female

DRUGS (1)
  1. BIMEKIZUMAB [Suspect]
     Active Substance: BIMEKIZUMAB
     Indication: Hidradenitis
     Dosage: 320 MILLIGRAM, EV 2 WEEKS(QOW)
     Route: 058
     Dates: start: 20241224, end: 20250401

REACTIONS (10)
  - Hidradenitis [Unknown]
  - Groin pain [Recovering/Resolving]
  - Pain [Recovering/Resolving]
  - Fatigue [Recovered/Resolved]
  - Oral candidiasis [Recovered/Resolved]
  - Nasopharyngitis [Recovering/Resolving]
  - Vulvovaginal mycotic infection [Recovered/Resolved]
  - Decreased immune responsiveness [Recovered/Resolved]
  - Product dose omission issue [Unknown]
  - Device issue [Unknown]

NARRATIVE: CASE EVENT DATE: 20250101
